FAERS Safety Report 6678084-X (Version None)
Quarter: 2010Q2

REPORT INFORMATION
  Report Type: 
  Country: None (occurrence: None)
  Receive Date: 20100409
  Receipt Date: 20100409
  Transmission Date: 20101027
  Serious: Yes (Other)
  Sender: FDA-Public Use
  Company Number: None

PATIENT
  Sex: Male
  Weight: 14.3 kg

DRUGS (1)
  1. BUDESONIDE [Suspect]
     Indication: WHEEZING
     Dosage: 1 VIAL TWICE PER DAY INHAL
     Route: 055
     Dates: start: 20100324, end: 20100324

REACTIONS (2)
  - PRODUCT SUBSTITUTION ISSUE [None]
  - PSYCHOMOTOR HYPERACTIVITY [None]
